FAERS Safety Report 5018032-1 (Version None)
Quarter: 2006Q2

REPORT INFORMATION
  Report Type: 
  Country: None (occurrence: None)
  Receive Date: 20060605
  Receipt Date: 20060419
  Transmission Date: 20061013
  Serious: Yes (Hospitalization)
  Sender: FDA-Public Use
  Company Number: JP-MERCK-0604USA03571M

PATIENT

DRUGS (2)
  1. INDOCIN [Suspect]
     Indication: UTERINE HYPERTONUS
     Route: 054
  2. RITODRINE HYDROCHLORIDE [Concomitant]
     Route: 042

REACTIONS (16)
  - ATRIAL FLUTTER [None]
  - BLOOD POTASSIUM INCREASED [None]
  - CAESAREAN SECTION [None]
  - DILATATION VENTRICULAR [None]
  - DRUG EXPOSURE DURING PREGNANCY [None]
  - DRUG INEFFECTIVE [None]
  - ENCEPHALOPATHY NEONATAL [None]
  - HYPOTENSION [None]
  - HYPOXIA [None]
  - METABOLIC ACIDOSIS [None]
  - OLIGURIA [None]
  - PATENT DUCTUS ARTERIOSUS [None]
  - PREMATURE BABY [None]
  - PULMONARY HYPERTENSION [None]
  - TORSADE DE POINTES [None]
  - VENTRICULAR TACHYCARDIA [None]
